FAERS Safety Report 7018033-8 (Version None)
Quarter: 2010Q3

REPORT INFORMATION
  Report Type: 
  Country: None (occurrence: None)
  Receive Date: 20100928
  Receipt Date: 20100917
  Transmission Date: 20110219
  Serious: Yes (Death, Other)
  Sender: FDA-Public Use
  Company Number: PHHY2009JP54854

PATIENT
  Sex: Male
  Weight: 50 kg

DRUGS (4)
  1. ICL670A ICL+DISTAB [Suspect]
     Indication: IRON OVERLOAD
     Dosage: 1000 MG, DAILY
     Route: 048
     Dates: start: 20080811, end: 20090511
  2. ICL670A ICL+DISTAB [Suspect]
     Indication: MYELODYSPLASTIC SYNDROME
     Dosage: 500 MG, DAILY
     Route: 048
     Dates: start: 20090512, end: 20090730
  3. RED CELLS MAP (IRRDIATED RED CELLS CONENTRATES-LEUKOCYTES REDUCED) [Concomitant]
     Dosage: 2 UNITS EVERY TWO WEEKS
     Dates: start: 20080811, end: 20090211
  4. RED CELLS MAP (IRRDIATED RED CELLS CONENTRATES-LEUKOCYTES REDUCED) [Concomitant]
     Dosage: 2 UNITS EVERY TWO WEEKS
     Dates: start: 20090203, end: 20090729

REACTIONS (4)
  - BLOOD BILIRUBIN INCREASED [None]
  - DIARRHOEA [None]
  - MALIGNANT NEOPLASM PROGRESSION [None]
  - MYELODYSPLASTIC SYNDROME [None]
